FAERS Safety Report 12133755 (Version 3)
Quarter: 2016Q3

REPORT INFORMATION
  Report Type: Report from Study
  Country: GB (occurrence: GB)
  Receive Date: 20160301
  Receipt Date: 20160920
  Transmission Date: 20161109
  Serious: Yes (Other)
  Sender: FDA-Public Use
  Company Number: GB-BRISTOL-MYERS SQUIBB COMPANY-BMS-2015-090791

PATIENT
  Age: 52 Year
  Sex: Female

DRUGS (1)
  1. IPILIMUMAB [Suspect]
     Active Substance: IPILIMUMAB
     Indication: MALIGNANT MELANOMA
     Dosage: UNK
     Route: 065
     Dates: start: 20151014

REACTIONS (11)
  - Diarrhoea [Recovering/Resolving]
  - Dyspnoea [Recovering/Resolving]
  - Wheezing [Unknown]
  - Cough [Not Recovered/Not Resolved]
  - Malaise [Unknown]
  - Thrombosis [Unknown]
  - Vomiting [Unknown]
  - Lower respiratory tract infection [Unknown]
  - Hypoaesthesia [Unknown]
  - Fatigue [Unknown]
  - Infusion site infection [Recovering/Resolving]

NARRATIVE: CASE EVENT DATE: 20160105
